FAERS Safety Report 13263175 (Version 1)
Quarter: 2017Q1

REPORT INFORMATION
  Report Type: Spontaneous
  Country: US (occurrence: US)
  Receive Date: 20170223
  Receipt Date: 20170223
  Transmission Date: 20170428
  Serious: Yes (Other)
  Sender: FDA-Public Use
  Company Number: US-AMGEN-USASP2017026238

PATIENT
  Age: 45 Year
  Sex: Female

DRUGS (3)
  1. XGEVA [Suspect]
     Active Substance: DENOSUMAB
     Indication: SARCOMA
     Dosage: UNK, QMO
     Route: 065
     Dates: start: 2011
  2. PROLIA [Suspect]
     Active Substance: DENOSUMAB
     Indication: NEOPLASM MALIGNANT
  3. PROLIA [Suspect]
     Active Substance: DENOSUMAB
     Indication: BONE LOSS
     Dosage: 60 MG, Q6MO
     Route: 065
     Dates: start: 2014

REACTIONS (10)
  - Peripheral swelling [Not Recovered/Not Resolved]
  - Adverse drug reaction [Unknown]
  - Hypokalaemia [Unknown]
  - Bone disorder [Unknown]
  - Magnesium deficiency [Unknown]
  - Bone pain [Unknown]
  - Foot fracture [Unknown]
  - Blood disorder [Unknown]
  - Anaemia [Unknown]
  - Pain in extremity [Not Recovered/Not Resolved]

NARRATIVE: CASE EVENT DATE: 201701
